FAERS Safety Report 22384379 (Version 1)
Quarter: 2023Q2

REPORT INFORMATION
  Report Type: Spontaneous
  Country: PT (occurrence: PT)
  Receive Date: 20230530
  Receipt Date: 20230530
  Transmission Date: 20230722
  Serious: Yes (Other)
  Sender: FDA-Public Use
  Company Number: PT-MYLANLABS-2023M1054949

PATIENT
  Age: 16 Year
  Sex: Female

DRUGS (6)
  1. RISPERIDONE [Suspect]
     Active Substance: RISPERIDONE
     Indication: Delusional disorder, somatic type
     Dosage: UNK
     Route: 065
  2. RISPERIDONE [Suspect]
     Active Substance: RISPERIDONE
     Indication: Somatic symptom disorder of pregnancy
     Dosage: UNK, DOSE INCREASED
     Route: 065
  3. SERTRALINE [Suspect]
     Active Substance: SERTRALINE HYDROCHLORIDE
     Indication: Delusional disorder, somatic type
     Dosage: UNK, PILLS
     Route: 065
  4. SERTRALINE [Suspect]
     Active Substance: SERTRALINE HYDROCHLORIDE
     Indication: Somatic symptom disorder of pregnancy
  5. CLONAZEPAM [Concomitant]
     Active Substance: CLONAZEPAM
     Indication: Delusional disorder, somatic type
     Dosage: UNK
     Route: 065
  6. CLONAZEPAM [Concomitant]
     Active Substance: CLONAZEPAM
     Indication: Somatic symptom disorder of pregnancy

REACTIONS (3)
  - Drug ineffective [Unknown]
  - Galactorrhoea [Unknown]
  - Intentional product misuse [Unknown]
